FAERS Safety Report 9318512 (Version 1)
Quarter: 2013Q2

REPORT INFORMATION
  Report Type: Spontaneous
  Country: IT (occurrence: None)
  Receive Date: 20130524
  Receipt Date: 20130524
  Transmission Date: 20140414
  Serious: Yes (Other)
  Sender: FDA-Public Use
  Company Number: FK201301667

PATIENT
  Age: 66 Year
  Sex: Female
  Weight: 45 kg

DRUGS (6)
  1. EPIRUBICIN [Suspect]
     Indication: BREAST CANCER
     Dosage: 105 MG, CYCLICAL, INTRAVENOUS (NOT OTHERWISE SPECIFIED)
     Route: 042
     Dates: start: 20130121, end: 20130510
  2. ENDOXAN [Suspect]
     Indication: BREAST CANCER
     Dosage: 700 MG, CYCLICAL, INTRAVENOUS (NOT OTHERWISE SPECIFIED)
     Route: 042
     Dates: start: 20130121, end: 20130510
  3. FLUOROURACIL (FLUOROURACIL) (FLUOROURACIL) [Suspect]
     Indication: BREAST CANCER
     Dosage: 700 MG, CYCLICAL, INTRAVENOUS (NOT OTHERWISE SPECIFIED)
     Route: 042
     Dates: start: 20130121, end: 20130510
  4. EUTIROX (LEVOTHYROXINE SODIUM) [Concomitant]
  5. ALIFLUS (FLUTICASONE PROPIONATE W/SALMETEROL) [Concomitant]
  6. SIMVASTIN (SIMVASTATIN) [Concomitant]

REACTIONS (3)
  - Asthenia [None]
  - Constipation [None]
  - Neutropenia [None]
